FAERS Safety Report 4664596-7 (Version None)
Quarter: 2005Q2

REPORT INFORMATION
  Report Type: 
  Country: None (occurrence: None)
  Receive Date: 20050518
  Receipt Date: 20050504
  Transmission Date: 20051028
  Serious: Yes (Death)
  Sender: FDA-Public Use
  Company Number: 234733

PATIENT
  Age: 60 Year
  Sex: Female

DRUGS (39)
  1. DILATREND [Suspect]
     Indication: HYPERTENSION
     Dosage: 6.25MG TWICE PER DAY
     Route: 048
     Dates: start: 19980811
  2. UNAT [Suspect]
     Indication: CARDIAC FAILURE
     Dosage: 40MG PER DAY
     Route: 048
     Dates: start: 19980808
  3. EUGLUCON [Suspect]
     Indication: DIABETES MELLITUS
     Dosage: 1U PER DAY
     Route: 048
     Dates: start: 19980821
  4. HEPARIN CALCIUM [Suspect]
     Indication: THROMBOSIS PROPHYLAXIS
     Dosage: 7500IU TWICE PER DAY
     Route: 058
     Dates: start: 19980811, end: 19980818
  5. DIGIMERCK MINOR [Suspect]
     Indication: CARDIAC FAILURE
     Dosage: 1U PER DAY
     Route: 048
     Dates: start: 19980812
  6. PASPERTIN [Suspect]
     Indication: NAUSEA
     Dosage: 20DROP THREE TIMES PER DAY
     Route: 048
     Dates: start: 19980814
  7. FRAGMIN FORTE [Suspect]
     Indication: THROMBOSIS PROPHYLAXIS
     Dosage: 1U PER DAY
     Route: 058
     Dates: start: 19980818
  8. XANEF [Suspect]
     Indication: HYPERTENSION
     Dosage: 5MG TWICE PER DAY
     Route: 048
     Dates: start: 19980818
  9. ISOKET RETARD [Suspect]
     Indication: HYPERTENSION
     Dosage: 60MG PER DAY
     Route: 048
     Dates: start: 19980818
  10. BENZYLPENICILLIN SODIUM [Suspect]
     Dosage: 10IU6 TWICE PER DAY
     Route: 042
     Dates: start: 19980821, end: 19980826
  11. VANCOMYCIN [Suspect]
     Indication: PNEUMONIA
     Route: 042
     Dates: start: 19980821, end: 19980826
  12. LASIX [Suspect]
     Indication: CARDIAC FAILURE
     Dosage: 1U PER DAY
     Route: 048
     Dates: end: 19980807
  13. AQUAPHOR [Suspect]
     Indication: HYPERTENSION
     Dosage: 40MG PER DAY
     Route: 048
     Dates: start: 19980807, end: 19980817
  14. DIPYRONE TAB [Suspect]
     Indication: PAIN
     Dosage: 20DROP PER DAY
     Route: 048
     Dates: start: 19980811, end: 19980811
  15. PRES [Suspect]
     Indication: HYPERTENSION
     Dosage: 5MG TWICE PER DAY
     Route: 048
     Dates: start: 19980811, end: 19980817
  16. ASPIRIN [Suspect]
     Indication: THROMBOSIS PROPHYLAXIS
     Dosage: 100MG PER DAY
     Route: 048
  17. CAPTOPRIL [Concomitant]
     Dates: start: 19980806
  18. ERYFER [Concomitant]
     Dates: end: 19980807
  19. NOVODIGAL [Concomitant]
     Dates: end: 19980812
  20. ANTRA [Concomitant]
     Dates: end: 19980818
  21. IRENAT [Concomitant]
     Dates: end: 19980828
  22. DEPOT INSULIN [Concomitant]
  23. CARBIMAZOL [Concomitant]
  24. ZOCOR [Concomitant]
     Dates: start: 19980803, end: 19980818
  25. DOPAMINE HCL [Concomitant]
     Dates: start: 19980808, end: 19980808
  26. PASPERTIN [Concomitant]
     Dates: start: 19980808, end: 19980826
  27. TUTOFUSIN [Concomitant]
     Dates: start: 19980811, end: 19980817
  28. KALIUM DURILES [Concomitant]
     Dates: start: 19980814, end: 19980820
  29. KALIUMCHLORIDE [Concomitant]
     Dates: start: 19980818, end: 19980828
  30. KALINOR [Concomitant]
     Dates: start: 19980821, end: 19980826
  31. STEROFUNDIN [Concomitant]
     Route: 042
     Dates: start: 19980821, end: 19980821
  32. GLUCOSE [Concomitant]
     Dates: start: 19980824, end: 19980824
  33. CLEMASTINE FUMARATE [Concomitant]
     Dates: start: 19980826, end: 19980826
  34. SOLU-DECORTIN [Concomitant]
     Dates: start: 19980826, end: 19980826
  35. TAGAMET [Concomitant]
     Route: 042
     Dates: start: 19980826, end: 19980826
  36. PARACETAMOL [Concomitant]
     Dates: start: 19980826
  37. SORTIS [Concomitant]
     Dates: start: 19980826
  38. PRIMAXIN [Concomitant]
     Dates: start: 19980828
  39. DEXPANTHENOL [Concomitant]
     Dates: start: 19980808, end: 19980808

REACTIONS (11)
  - BLISTER [None]
  - CARDIAC FAILURE [None]
  - HYPERTENSION [None]
  - LIP EROSION [None]
  - NAUSEA [None]
  - PAIN [None]
  - PNEUMONIA [None]
  - RASH MACULO-PAPULAR [None]
  - SEPTIC SHOCK [None]
  - SHOCK [None]
  - TOXIC EPIDERMAL NECROLYSIS [None]
